FAERS Safety Report 18730264 (Version 7)
Quarter: 2022Q1

REPORT INFORMATION
  Report Type: Spontaneous
  Country: CA (occurrence: CA)
  Receive Date: 20210112
  Receipt Date: 20220119
  Transmission Date: 20220423
  Serious: Yes (Other)
  Sender: FDA-Public Use
  Company Number: CA-PFIZER INC-2020446953

PATIENT
  Age: 1 Year
  Sex: Male
  Weight: 9.9 kg

DRUGS (11)
  1. RAPAMUNE [Suspect]
     Active Substance: SIROLIMUS
     Indication: Allogenic bone marrow transplantation therapy
     Dosage: UNK
  2. RAPAMUNE [Suspect]
     Active Substance: SIROLIMUS
     Indication: Autoimmune haemolytic anaemia
  3. DAPSONE [Concomitant]
     Active Substance: DAPSONE
     Dosage: 100 MG
  4. DAPSONE [Concomitant]
     Active Substance: DAPSONE
     Dosage: 100 MG
     Dates: start: 20220110
  5. FOLIC ACID [Concomitant]
     Active Substance: FOLIC ACID
     Dosage: 1 MG, TAKE 1MG BY MOUTH
  6. OMEPRAZOLE MAGNESIUM [Concomitant]
     Active Substance: OMEPRAZOLE MAGNESIUM
     Dosage: 10 MG
  7. PREDNISONE [Concomitant]
     Active Substance: PREDNISONE
     Dosage: 5 MG/ML, SUSPENSION
  8. PREDNISONE [Concomitant]
     Active Substance: PREDNISONE
     Dosage: 5 MG/ML SUSPENSION TAKE 2.4 ML (12 MG) BY MOUTH TWICE DAILY FOR 5 DAYS
  9. SIROLIMUS [Concomitant]
     Active Substance: SIROLIMUS
     Dosage: 1 MG/ML, SOLUTION
  10. CHOLECALCIFEROL [Concomitant]
     Active Substance: CHOLECALCIFEROL
     Dosage: 400 IU
  11. CHOLECALCIFEROL [Concomitant]
     Active Substance: CHOLECALCIFEROL
     Dosage: 800 IU

REACTIONS (9)
  - Adrenal insufficiency [Unknown]
  - Autoimmune haemolytic anaemia [Unknown]
  - Retinopathy of prematurity [Unknown]
  - Graft versus host disease [Unknown]
  - Skin warm [Unknown]
  - Dry skin [Unknown]
  - Blood immunoglobulin G decreased [Unknown]
  - Visual impairment [Unknown]
  - Off label use [Unknown]

NARRATIVE: CASE EVENT DATE: 20201211
